FAERS Safety Report 12342248 (Version 2)
Quarter: 2016Q2

REPORT INFORMATION
  Report Type: Report from Study
  Country: GB (occurrence: GB)
  Receive Date: 20160506
  Receipt Date: 20160516
  Transmission Date: 20160815
  Serious: Yes (Death, Hospitalization)
  Sender: FDA-Public Use
  Company Number: GB-ABBVIE-16P-167-1621956-00

PATIENT
  Sex: Male

DRUGS (1)
  1. DUODOPA [Suspect]
     Active Substance: CARBIDOPA\LEVODOPA
     Indication: PARKINSON^S DISEASE
     Dosage: 3.8 MLS-100ML CASSETTE
     Route: 050
     Dates: start: 20140224, end: 20160503

REACTIONS (5)
  - Intestinal perforation [Fatal]
  - Abdominal injury [Unknown]
  - Head injury [Unknown]
  - Fall [Unknown]
  - Device alarm issue [Unknown]

NARRATIVE: CASE EVENT DATE: 2016
